FAERS Safety Report 7113174-9 (Version None)
Quarter: 2010Q4

REPORT INFORMATION
  Report Type: 
  Country: None (occurrence: None)
  Receive Date: 20101119
  Receipt Date: 20100408
  Transmission Date: 20110411
  Serious: No
  Sender: FDA-Public Use
  Company Number: A0760226A

PATIENT
  Age: 58 Year
  Sex: Female

DRUGS (2)
  1. BUPROPION HCL [Suspect]
     Indication: DEPRESSION
     Dosage: 100MG IN THE MORNING
     Route: 048
     Dates: start: 20060101
  2. LITHIUM [Concomitant]
     Dosage: 600MGD PER DAY
     Route: 048

REACTIONS (4)
  - ANXIETY [None]
  - DRUG INEFFECTIVE [None]
  - MEDICATION RESIDUE [None]
  - PRODUCT QUALITY ISSUE [None]
